FAERS Safety Report 4515018-8 (Version None)
Quarter: 2004Q4

REPORT INFORMATION
  Report Type: 
  Country: None (occurrence: None)
  Receive Date: 20041129
  Receipt Date: 20041129
  Transmission Date: 20050328
  Serious: No
  Sender: FDA-Public Use
  Company Number: None

PATIENT
  Age: 59 Year
  Sex: Male
  Weight: 69.8539 kg

DRUGS (1)
  1. BEXTRA [Suspect]
     Indication: ARTHRITIS
     Dosage: 1 DAILY
     Dates: start: 20030901, end: 20041001

REACTIONS (3)
  - CONTUSION [None]
  - HAEMORRHOIDS [None]
  - IMPAIRED HEALING [None]
